FAERS Safety Report 8020535-2 (Version None)
Quarter: 2012Q1

REPORT INFORMATION
  Report Type: 
  Country: None (occurrence: None)
  Receive Date: 20120103
  Receipt Date: 20111228
  Transmission Date: 20120608
  Serious: Yes (Death, Life-Threatening, Other)
  Sender: FDA-Public Use
  Company Number: JP-ROCHE-618206

PATIENT
  Sex: Female
  Weight: 34.7 kg

DRUGS (19)
  1. ACTEMRA [Suspect]
     Route: 041
     Dates: start: 20080911, end: 20080911
  2. ACTEMRA [Suspect]
     Route: 041
     Dates: start: 20081125, end: 20081125
  3. PREDNISOLONE [Concomitant]
     Route: 048
     Dates: start: 20081030, end: 20081124
  4. LOXOPROFEN SODIUM [Concomitant]
     Route: 048
     Dates: start: 20090423, end: 20090624
  5. NEOISCOTIN [Concomitant]
     Dosage: NOTE: MONDAY AND THURSDAY
     Route: 048
  6. PREDNISOLONE [Concomitant]
     Route: 048
  7. ACTEMRA [Suspect]
     Route: 041
     Dates: start: 20080814, end: 20080814
  8. ACTEMRA [Suspect]
     Route: 041
     Dates: start: 20081225, end: 20081225
  9. AZULFIDINE [Concomitant]
     Indication: RHEUMATOID ARTHRITIS
     Route: 048
  10. PREDNISOLONE [Concomitant]
     Indication: RHEUMATOID ARTHRITIS
     Dosage: DRUG: PREDOHAN
     Route: 048
  11. KETOPROFEN [Concomitant]
     Dosage: DRUG RPTD: MOHRUS TAPE, FORM: TAPE, NOTE: DOSAGE ADJUSTED
     Route: 061
  12. ACTEMRA [Suspect]
     Route: 041
     Dates: start: 20081009, end: 20081009
  13. PASIL [Concomitant]
     Route: 041
     Dates: start: 20080717, end: 20080717
  14. ACTEMRA [Suspect]
     Indication: RHEUMATOID ARTHRITIS
     Route: 041
     Dates: start: 20080717, end: 20080717
  15. ACTEMRA [Suspect]
     Route: 041
     Dates: start: 20090122, end: 20090514
  16. ADRENAL CORTEX EXTRACT [Concomitant]
     Dosage: DRUG: ZESTAK (ADRENAL EXTRACT_SALICYLIC ACID COMBINED DRUG), FORM: OINTMENT AND CREAM
     Route: 061
  17. ACTEMRA [Suspect]
     Route: 041
     Dates: start: 20081030, end: 20081030
  18. PREDNISOLONE [Concomitant]
     Route: 048
     Dates: start: 20081030, end: 20081124
  19. PYRIDOXAL PHOSPHATE [Concomitant]
     Dosage: NOTE: MONDAY AND THURSDAY
     Route: 048

REACTIONS (5)
  - AORTIC ANEURYSM RUPTURE [None]
  - PNEUMONIA [None]
  - RESPIRATORY FAILURE [None]
  - DISSEMINATED INTRAVASCULAR COAGULATION [None]
  - HYPERLIPIDAEMIA [None]
